FAERS Safety Report 6760617-6 (Version None)
Quarter: 2010Q2

REPORT INFORMATION
  Report Type: 
  Country: None (occurrence: None)
  Receive Date: 20100607
  Receipt Date: 20100607
  Transmission Date: 20101027
  Serious: No
  Sender: FDA-Public Use
  Company Number: None

PATIENT
  Sex: Female

DRUGS (1)
  1. ABILIFY [Suspect]
     Dosage: 20MG QD PO
     Route: 048
     Dates: start: 20081001, end: 20100604

REACTIONS (1)
  - BLOOD GLUCOSE INCREASED [None]
